FAERS Safety Report 5973625-X (Version None)
Quarter: 2008Q4

REPORT INFORMATION
  Report Type: 
  Country: None (occurrence: None)
  Receive Date: 20081201
  Receipt Date: 20081117
  Transmission Date: 20090506
  Serious: Yes (Other)
  Sender: FDA-Public Use
  Company Number: FR-ELI_LILLY_AND_COMPANY-FR200803006104

PATIENT
  Age: 52 Year
  Sex: Female
  Weight: 100 kg

DRUGS (8)
  1. CYMBALTA [Suspect]
     Indication: DEPRESSION
     Dosage: 60 MG, DAILY (1/D)
     Route: 048
     Dates: start: 20080201, end: 20080227
  2. ABILIFY [Concomitant]
     Indication: DEPRESSION
     Dosage: 5 MG, DAILY (1/D)
     Route: 048
     Dates: start: 20070201, end: 20080301
  3. TERALITHE [Concomitant]
     Indication: DEPRESSION
     Dosage: 2.5 D/F, DAILY (1/D)
     Route: 048
     Dates: start: 20071201
  4. TERCIAN [Concomitant]
     Indication: ANXIETY
     Dosage: 25 MG, DAILY (1/D)
     Route: 048
     Dates: start: 20071201
  5. PAROXETINE HCL [Concomitant]
     Indication: DEPRESSION
     Dosage: 60 MG, DAILY (1/D)
     Route: 048
     Dates: start: 20070201
  6. LEVOTHYROX [Concomitant]
     Indication: THYROIDECTOMY
     Dosage: 150 MG, DAILY (1/D)
     Route: 048
     Dates: start: 20000101
  7. PRAVASTATIN [Concomitant]
     Indication: HYPERCHOLESTEROLAEMIA
     Dosage: 20 MG, DAILY (1/D)
     Route: 048
     Dates: start: 20000101
  8. DEROXAT [Concomitant]
     Indication: DEPRESSION
     Dosage: UNK, UNKNOWN
     Route: 065
     Dates: end: 20080301

REACTIONS (1)
  - TYPE 2 DIABETES MELLITUS [None]
